FAERS Safety Report 24919859 (Version 1)
Quarter: 2025Q1

REPORT INFORMATION
  Report Type: Spontaneous
  Country: US (occurrence: US)
  Receive Date: 20250204
  Receipt Date: 20250204
  Transmission Date: 20250409
  Serious: No
  Sender: Kenvue
  Company Number: US-KENVUE-20250102776

PATIENT
  Age: 64 Year
  Sex: Female
  Weight: 56.7 kg

DRUGS (5)
  1. ZYRTEC [Suspect]
     Active Substance: CETIRIZINE HYDROCHLORIDE
     Indication: Rash pruritic
     Route: 065
     Dates: start: 20241219
  2. BENADRYL [Concomitant]
     Active Substance: DIPHENHYDRAMINE HYDROCHLORIDE
     Indication: Rash pruritic
     Route: 065
     Dates: start: 20241218, end: 20241218
  3. VELSIPITY [Concomitant]
     Active Substance: ETRASIMOD ARGININE
     Indication: Colitis ulcerative
     Dosage: 2 MILLIGRAM, ONCE A DAY (1 TABLET)
     Route: 065
     Dates: start: 2024
  4. BUDESONIDE [Concomitant]
     Active Substance: BUDESONIDE
     Indication: Colitis ulcerative
     Dosage: 3 MILLIGRAM, ONCE A DAY (1 TABLET)
     Route: 065
  5. VENLAFAXINE [Concomitant]
     Active Substance: VENLAFAXINE HYDROCHLORIDE
     Indication: Depression
     Dosage: 75 MILLIGRAM, ONCE A DAY
     Route: 065
     Dates: start: 202404

REACTIONS (1)
  - Product use in unapproved indication [Unknown]

NARRATIVE: CASE EVENT DATE: 20241219
